FAERS Safety Report 24147843 (Version 1)
Quarter: 2024Q3

REPORT INFORMATION
  Report Type: Spontaneous
  Country: US (occurrence: None)
  Receive Date: 20240727
  Receipt Date: 20240727
  Transmission Date: 20241016
  Serious: Yes (Hospitalization, Disabling, Congenital Anomaly, Other)
  Sender: Public
  Company Number: None

PATIENT
  Age: 4 Month
  Sex: Female

DRUGS (1)
  1. SUBOXONE [Suspect]
     Active Substance: BUPRENORPHINE HYDROCHLORIDE\NALOXONE HYDROCHLORIDE
     Indication: Drug use disorder
     Dosage: 2  SUBLINGUAL FILM DAILY SUBLINGJUAL
     Route: 060
     Dates: start: 20200101, end: 20200601

REACTIONS (5)
  - Exposure during pregnancy [None]
  - Exposure during pregnancy [None]
  - Maternal drugs affecting foetus [None]
  - Amniotic band syndrome [None]
  - Congenital anomaly [None]

NARRATIVE: CASE EVENT DATE: 20200304
